FAERS Safety Report 6651479-6 (Version None)
Quarter: 2010Q1

REPORT INFORMATION
  Report Type: 
  Country: None (occurrence: None)
  Receive Date: 20100325
  Receipt Date: 20100319
  Transmission Date: 20100710
  Serious: Yes (Death)
  Sender: FDA-Public Use
  Company Number: BR-ROCHE-691738

PATIENT
  Sex: Female
  Weight: 58 kg

DRUGS (4)
  1. CAPECITABINE [Suspect]
     Indication: BREAST CANCER
     Dosage: 2000 MG/M2, BID
     Route: 048
     Dates: start: 20100129, end: 20100211
  2. CAPECITABINE [Suspect]
     Dosage: 2000 MG/M2, BID
     Route: 048
     Dates: start: 20100129, end: 20100211
  3. LAPATINIB [Suspect]
     Indication: BREAST CANCER
     Dosage: 1250 MG, QD, DRUG NAME: LAPATINIB DITOSYLATE
     Route: 048
     Dates: start: 20100129, end: 20100214
  4. LAPATINIB [Suspect]
     Dosage: 1250 MG, QD
     Route: 048
     Dates: start: 20100129, end: 20100214

REACTIONS (1)
  - MULTI-ORGAN FAILURE [None]
